FAERS Safety Report 9189908 (Version 1)
Quarter: 2013Q1

REPORT INFORMATION
  Report Type: Spontaneous
  Country: FI (occurrence: FI)
  Receive Date: 20130326
  Receipt Date: 20130326
  Transmission Date: 20140127
  Serious: Yes (Hospitalization)
  Sender: FDA-Public Use
  Company Number: FI-BAYER-2013-036484

PATIENT
  Age: 73 Year
  Sex: Female

DRUGS (2)
  1. NEXAVAR [Suspect]
     Dosage: DAILY DOSE 800 MG
     Route: 048
     Dates: start: 20130215
  2. THYROXIN [Concomitant]
     Dosage: DAILY DOSE .1 MG
     Route: 048

REACTIONS (3)
  - Asthenia [Not Recovered/Not Resolved]
  - Haemoptysis [Not Recovered/Not Resolved]
  - C-reactive protein increased [Not Recovered/Not Resolved]
